FAERS Safety Report 8796933 (Version 1)
Quarter: 2012Q4

REPORT INFORMATION
  Report Type: Report from Study
  Country: DE (occurrence: DE)
  Receive Date: 20120920
  Receipt Date: 20120920
  Transmission Date: 20130627
  Serious: Yes (Hospitalization)
  Sender: FDA-Public Use
  Company Number: DE-BAXTER-2012BAX016947

PATIENT
  Age: 69 Year
  Sex: Male

DRUGS (8)
  1. ENDOXAN 1G [Suspect]
     Indication: B-CELL CHRONIC LYMPHOCYTIC LEUKAEMIA
     Route: 042
     Dates: start: 20101007, end: 20110304
  2. MABTHERA [Suspect]
     Indication: B-CELL CHRONIC LYMPHOCYTIC LEUKAEMIA
     Route: 042
     Dates: start: 20101006, end: 20110301
  3. FLUDARABINE [Suspect]
     Indication: B-CELL CHRONIC LYMPHOCYTIC LEUKAEMIA
     Route: 042
     Dates: start: 20101007, end: 20110304
  4. METOPROLOL SUCCINATE [Concomitant]
     Indication: DRUG USE FOR UNKNOWN INDICATION
     Route: 048
  5. ASPIRIN [Concomitant]
     Indication: DRUG USE FOR UNKNOWN INDICATION
     Route: 048
  6. IBUPROFEN [Concomitant]
     Indication: DRUG USE FOR UNKNOWN INDICATION
     Route: 048
  7. PLATELETS [Concomitant]
     Indication: DRUG USE FOR UNKNOWN INDICATION
     Route: 065
  8. PACKED RED BLOOD CELLS [Concomitant]
     Indication: DRUG USE FOR UNKNOWN INDICATION
     Route: 065

REACTIONS (1)
  - Myelodysplastic syndrome [Unknown]
